FAERS Safety Report 25670616 (Version 1)
Quarter: 2025Q3

REPORT INFORMATION
  Report Type: Spontaneous
  Country: IN (occurrence: IN)
  Receive Date: 20250812
  Receipt Date: 20250812
  Transmission Date: 20251020
  Serious: Yes (Other)
  Sender: MACLEODS
  Company Number: IN-MLMSERVICE-20250725-PI590952-00322-1

PATIENT

DRUGS (5)
  1. PREGABALIN [Suspect]
     Active Substance: PREGABALIN
     Indication: Sleep disorder
     Route: 065
  2. PREGABALIN [Suspect]
     Active Substance: PREGABALIN
     Indication: Seizure
     Dosage: 30000 MG/DAY
     Route: 065
  3. PREGABALIN [Suspect]
     Active Substance: PREGABALIN
     Route: 065
  4. PREGABALIN [Suspect]
     Active Substance: PREGABALIN
     Route: 065
  5. TRAMADOL [Suspect]
     Active Substance: TRAMADOL
     Indication: Product used for unknown indication
     Dosage: 15-20 TABLETS PER DAY OF 100 MG, IN THE NEXT 6 MONTHS, ONE DAY INGESTED ALL TABLETS IN ONE GO
     Route: 048

REACTIONS (16)
  - Generalised tonic-clonic seizure [Unknown]
  - Intentional overdose [Unknown]
  - Loss of consciousness [Recovered/Resolved]
  - Drug abuse [Unknown]
  - Drug dependence [Unknown]
  - Asthenia [Recovered/Resolved]
  - Hypoaesthesia [Recovered/Resolved]
  - Gastrointestinal disorder [Recovered/Resolved]
  - Paraesthesia [Unknown]
  - Depressed mood [Unknown]
  - Sleep disorder [Unknown]
  - Confusional state [Recovered/Resolved]
  - Dyspnoea [Recovered/Resolved]
  - Headache [Recovered/Resolved]
  - Irritability [Recovered/Resolved]
  - Withdrawal syndrome [Unknown]
